FAERS Safety Report 4650535-1 (Version None)
Quarter: 2005Q2

REPORT INFORMATION
  Report Type: 
  Country: None (occurrence: None)
  Receive Date: 20050429
  Receipt Date: 20050420
  Transmission Date: 20051028
  Serious: Yes (Hospitalization)
  Sender: FDA-Public Use
  Company Number: 200509314

PATIENT
  Age: 61 Year
  Sex: Male

DRUGS (2)
  1. STREPTASE [Suspect]
     Indication: MYOCARDIAL INFARCTION
     Dosage: 1.5 MIU DAILY IV
     Route: 042
     Dates: start: 20011101
  2. ASPIRIN [Concomitant]

REACTIONS (6)
  - COMPARTMENT SYNDROME [None]
  - HAEMORRHAGE [None]
  - LIMB DISCOMFORT [None]
  - OEDEMA PERIPHERAL [None]
  - PAIN [None]
  - POST PROCEDURAL COMPLICATION [None]
